FAERS Safety Report 6047793-8 (Version None)
Quarter: 2009Q1

REPORT INFORMATION
  Report Type: 
  Country: None (occurrence: None)
  Receive Date: 20090123
  Receipt Date: 20090115
  Transmission Date: 20090719
  Serious: Yes (Hospitalization)
  Sender: FDA-Public Use
  Company Number: CA-ASTRAZENECA-2009UW01501

PATIENT
  Age: 49 Year
  Sex: Female

DRUGS (9)
  1. SEROQUEL [Suspect]
     Route: 048
  2. SEROQUEL [Suspect]
     Dosage: 800 MG
     Route: 048
  3. SEROQUEL [Suspect]
     Dosage: 1200 MG
     Route: 048
  4. SEROQUEL [Suspect]
     Route: 048
  5. SEROQUEL [Suspect]
     Route: 048
  6. ATIVAN [Concomitant]
     Route: 048
  7. AVAPRO [Concomitant]
     Route: 048
  8. GABAPENTIN [Concomitant]
     Route: 048
  9. SYNTHROID [Concomitant]
     Route: 048

REACTIONS (19)
  - ALOPECIA [None]
  - BALANCE DISORDER [None]
  - CARDIAC FAILURE CONGESTIVE [None]
  - CEREBROVASCULAR ACCIDENT [None]
  - COLD SWEAT [None]
  - CONSTIPATION [None]
  - DYSPNOEA [None]
  - HYPERTENSION [None]
  - INFLAMMATION [None]
  - NASOPHARYNGITIS [None]
  - NIGHTMARE [None]
  - PAIN [None]
  - PARTIAL SEIZURES [None]
  - RHINORRHOEA [None]
  - SKIN DISORDER [None]
  - SUICIDAL IDEATION [None]
  - TEMPERATURE INTOLERANCE [None]
  - VAGINAL DISCHARGE [None]
  - VASCULITIS [None]
